FAERS Safety Report 21285743 (Version 1)
Quarter: 2022Q3

REPORT INFORMATION
  Report Type: Report from Study
  Country: BR (occurrence: BR)
  Receive Date: 20220902
  Receipt Date: 20220902
  Transmission Date: 20221026
  Serious: Yes (Other)
  Sender: FDA-Public Use
  Company Number: BR-JNJFOC-20220861229

PATIENT
  Sex: Female
  Weight: 68.5 kg

DRUGS (5)
  1. INFLIXIMAB [Suspect]
     Active Substance: INFLIXIMAB
     Indication: Colitis ulcerative
     Route: 041
     Dates: start: 202004
  2. INFLIXIMAB [Suspect]
     Active Substance: INFLIXIMAB
     Indication: Colitis
  3. AZATHIOPRINE [Concomitant]
     Active Substance: AZATHIOPRINE
  4. CALCIUM PHOSPHATE [Concomitant]
     Active Substance: CALCIUM PHOSPHATE
  5. OMEPRAZOLE [Concomitant]
     Active Substance: OMEPRAZOLE
     Indication: Abdominal discomfort

REACTIONS (3)
  - Colitis ulcerative [Unknown]
  - Abscess [Unknown]
  - Off label use [Unknown]
